FAERS Safety Report 14894185 (Version 1)
Quarter: 2018Q2

REPORT INFORMATION
  Report Type: Spontaneous
  Country: US (occurrence: US)
  Receive Date: 20180514
  Receipt Date: 20180514
  Transmission Date: 20180711
  Serious: No
  Sender: FDA-Public Use
  Company Number: US-BIOVERATIV-2018BV000199

PATIENT
  Sex: Male
  Weight: 18 kg

DRUGS (1)
  1. ALPROLIX [Suspect]
     Active Substance: EFTRENONACOG ALFA
     Indication: HAEMOPHILIA
     Dosage: EVERY SATURDAY?SINCE APPROXIMATELY 2 YEARS AGO
     Route: 065

REACTIONS (2)
  - Somnolence [Not Recovered/Not Resolved]
  - Arthralgia [Recovered/Resolved]
